FAERS Safety Report 9512131 (Version 1)
Quarter: 2013Q1

REPORT INFORMATION
  Report Type: Spontaneous
  Country: US (occurrence: None)
  Receive Date: 20130305
  Receipt Date: 20130305
  Transmission Date: 20140127
  Serious: Yes (Other)
  Sender: FDA-Public Use
  Company Number: 163-21880-11123790

PATIENT
  Age: 58 Year
  Sex: Female
  Weight: 81.65 kg

DRUGS (9)
  1. REVLIMID (LENALIDOMIDE) (25 MILLIGRAM, CAPSULES) [Suspect]
     Indication: NON-HODGKIN^S LYMPHOMA
     Dosage: 25 MG, 21/7, PO
     Route: 048
     Dates: start: 20111031, end: 201112
  2. OMEPRAZOLE (OMEPRAZOLE) (CAPSULES) [Concomitant]
  3. ESTRADIOL (ESTRADIOL) (TABLET) [Concomitant]
  4. LISINOPRIL (LISINOPRIL) (TABLETS) [Concomitant]
  5. GABAPENTIN (GABAPENTIN) (UNKNOWN) (GABAPENTIN) [Concomitant]
  6. NEURONTIN (GABAPENTIN) (UNKNOWN) [Concomitant]
  7. VITAMIN C (ASCORBIC ACID) (TABLETS) [Concomitant]
  8. MULTIPLE VITAMINS (MULTIPLE VITAMINS) (TABLETS) [Concomitant]
  9. CALCIUM (CALCIUM) (TABLETS) [Concomitant]

REACTIONS (1)
  - Neutropenia [None]
